FAERS Safety Report 12316653 (Version 1)
Quarter: 2016Q2

REPORT INFORMATION
  Report Type: Spontaneous
  Country: IT (occurrence: IT)
  Receive Date: 20160429
  Receipt Date: 20160429
  Transmission Date: 20160815
  Serious: Yes (Other)
  Sender: FDA-Public Use
  Company Number: IT-ROCHE-1749433

PATIENT
  Age: 66 Year
  Sex: Female
  Weight: 80 kg

DRUGS (3)
  1. HARVONI [Suspect]
     Active Substance: LEDIPASVIR\SOFOSBUVIR
     Indication: CHRONIC HEPATITIS C
     Dosage: 90 MG / 400 MG - 28 FILM-COATED TABLETS
     Route: 048
     Dates: start: 20160220
  2. COPEGUS [Suspect]
     Active Substance: RIBAVIRIN
     Indication: CHRONIC HEPATITIS C
     Dosage: ^200 MG 168 TABLETS IN A BOTTLE
     Route: 048
     Dates: start: 20160220
  3. BLOCADREN [Concomitant]
     Active Substance: TIMOLOL MALEATE
     Dosage: 40 X 10 MG TABLETS
     Route: 048

REACTIONS (3)
  - Gastrooesophageal reflux disease [Unknown]
  - Thrombophlebitis [Unknown]
  - Headache [Unknown]

NARRATIVE: CASE EVENT DATE: 20160304
